FAERS Safety Report 6614272-6 (Version None)
Quarter: 2010Q1

REPORT INFORMATION
  Report Type: 
  Country: None (occurrence: None)
  Receive Date: 20100304
  Receipt Date: 20100218
  Transmission Date: 20100710
  Serious: Yes (Other)
  Sender: FDA-Public Use
  Company Number: US-ELI_LILLY_AND_COMPANY-US201002005863

PATIENT
  Sex: Female

DRUGS (2)
  1. FORTEO [Suspect]
     Indication: OSTEOPOROSIS
     Dosage: 20 UG, DAILY (1/D)
     Dates: start: 20080301
  2. OXYBUTYNIN [Concomitant]
     Dosage: 5 MG, UNKNOWN

REACTIONS (3)
  - BREAST CANCER [None]
  - ILL-DEFINED DISORDER [None]
  - MAMMOGRAM ABNORMAL [None]
